FAERS Safety Report 8500383-7 (Version None)
Quarter: 2012Q3

REPORT INFORMATION
  Report Type: 
  Country: None (occurrence: None)
  Receive Date: 20120705
  Receipt Date: 20120705
  Transmission Date: 20120928
  Serious: Yes (Disabling)
  Sender: FDA-Public Use
  Company Number: None

PATIENT
  Age: 78 Year
  Sex: Female
  Weight: 57.1532 kg

DRUGS (1)
  1. CLARITHROMYCIN [Suspect]
     Indication: HELICOBACTER INFECTION
     Dosage: 1 DOSE -1 PILL0 TWICE DAILY PO
     Route: 048
     Dates: start: 20111127, end: 20111210

REACTIONS (2)
  - PHARYNGEAL OEDEMA [None]
  - DYSGEUSIA [None]
